FAERS Safety Report 4925067-3 (Version None)
Quarter: 2006Q1

REPORT INFORMATION
  Report Type: 
  Country: None (occurrence: None)
  Receive Date: 20060222
  Receipt Date: 20060209
  Transmission Date: 20060701
  Serious: Yes (Hospitalization, Other)
  Sender: FDA-Public Use
  Company Number: 2005-09-1507

PATIENT
  Age: 49 Year
  Sex: Female
  Weight: 99.7913 kg

DRUGS (16)
  1. ALBUTEROL [Suspect]
     Indication: ASTHMA
     Dosage: UNKNOWN INHALATION
     Dates: start: 19900101
  2. ALBUTEROL [Suspect]
     Indication: ASTHMA
     Dosage: 2 PUFFS PRN INHALATION
  3. ATROVENT [Suspect]
     Indication: ASTHMA
     Dosage: 2 PUFFS QID
     Dates: start: 19900101
  4. XOPENEX [Suspect]
     Indication: ASTHMA
     Dates: start: 19900101
  5. IPRATROPIUM BROMIDE [Suspect]
     Indication: ASTHMA
     Dosage: INHALATION
  6. THEO-DUR [Suspect]
  7. PREDNISONE [Concomitant]
  8. MIRAPEX [Concomitant]
  9. ADVAIR DISKUS 100/50 [Concomitant]
  10. SINGULAIR [Concomitant]
  11. TILADE [Concomitant]
  12. ATROVENT [Concomitant]
  13. ULTRAM [Concomitant]
  14. NEURONTIN [Concomitant]
  15. ASTELIN [Concomitant]
  16. ACCOLATE [Concomitant]

REACTIONS (16)
  - AORTIC VALVE INCOMPETENCE [None]
  - CHEST PAIN [None]
  - DRUG INTERACTION [None]
  - ECHOCARDIOGRAM ABNORMAL [None]
  - ELECTROCARDIOGRAM ST SEGMENT ELEVATION [None]
  - FIBRIN D DIMER INCREASED [None]
  - HEART RATE DECREASED [None]
  - HEPATIC FUNCTION ABNORMAL [None]
  - LABORATORY TEST ABNORMAL [None]
  - MITRAL VALVE INCOMPETENCE [None]
  - PERICARDIAL EFFUSION [None]
  - POST PROCEDURAL COMPLICATION [None]
  - PULMONARY ARTERIAL PRESSURE INCREASED [None]
  - STATUS ASTHMATICUS [None]
  - TRICUSPID VALVE INCOMPETENCE [None]
  - UPPER AIRWAY RESISTANCE SYNDROME [None]
